FAERS Safety Report 5119124-9 (Version None)
Quarter: 2006Q3

REPORT INFORMATION
  Report Type: 
  Country: None (occurrence: None)
  Receive Date: 20060929
  Receipt Date: 20060929
  Transmission Date: 20061208
  Serious: Yes (Life-Threatening)
  Sender: FDA-Public Use
  Company Number: None

PATIENT
  Sex: Female
  Weight: 78.9259 kg

DRUGS (6)
  1. LISINOPRIL [Suspect]
     Indication: HYPERTENSION
     Dosage: 40 MG 1 TAB DAILY PO
     Route: 048
  2. ADVAIR DISKUS 500/50 [Concomitant]
  3. DILTIAZEM HCL [Concomitant]
  4. DUONEB [Concomitant]
  5. CYCLOBENZAPRINE [Concomitant]
  6. PREVACID [Concomitant]

REACTIONS (4)
  - ADVERSE DRUG REACTION [None]
  - DYSPNOEA [None]
  - INFLAMMATION [None]
  - SWELLING FACE [None]
